FAERS Safety Report 18750273 (Version 1)
Quarter: 2021Q1

REPORT INFORMATION
  Report Type: Report from Study
  Country: CA (occurrence: CA)
  Receive Date: 20210118
  Receipt Date: 20210118
  Transmission Date: 20210419
  Serious: Yes (Other)
  Sender: FDA-Public Use
  Company Number: CA-ACCORD-214406

PATIENT
  Sex: Male

DRUGS (6)
  1. RISEDRONIC ACID [Concomitant]
     Active Substance: RISEDRONIC ACID
  2. PREDNISONE. [Suspect]
     Active Substance: PREDNISONE
     Indication: SCLERODERMA
     Route: 065
  3. PANTOPRAZOLE [Concomitant]
     Active Substance: PANTOPRAZOLE
  4. AZATHIOPRINE. [Suspect]
     Active Substance: AZATHIOPRINE
     Indication: SCLERODERMA
     Route: 065
  5. MYCOPHENOLIC ACID. [Suspect]
     Active Substance: MYCOPHENOLIC ACID
     Indication: SCLERODERMA
     Route: 065
  6. IRON [Concomitant]
     Active Substance: IRON

REACTIONS (4)
  - Drug intolerance [Unknown]
  - Pancytopenia [Unknown]
  - Therapeutic response decreased [Unknown]
  - Off label use [Unknown]
